FAERS Safety Report 4628073-1 (Version None)
Quarter: 2005Q2

REPORT INFORMATION
  Report Type: 
  Country: None (occurrence: None)
  Receive Date: 20050406
  Receipt Date: 20050329
  Transmission Date: 20051028
  Serious: Yes (Hospitalization, Other)
  Sender: FDA-Public Use
  Company Number: A0551643A

PATIENT
  Age: 79 Year
  Sex: Male
  Weight: 85 kg

DRUGS (2)
  1. BC ARTHRITIS STRENGTH POWDER [Suspect]
     Indication: HEADACHE
     Route: 048
     Dates: start: 19980101, end: 20030101
  2. BC HEADACHE POWDER [Suspect]
     Indication: HEADACHE
     Route: 048
     Dates: start: 19980101, end: 20030101

REACTIONS (1)
  - COLON CANCER [None]
